FAERS Safety Report 16471049 (Version 1)
Quarter: 2019Q2

REPORT INFORMATION
  Report Type: Spontaneous
  Country: DE (occurrence: DE)
  Receive Date: 20190624
  Receipt Date: 20190624
  Transmission Date: 20190711
  Serious: Yes (Hospitalization)
  Sender: FDA-Public Use
  Company Number: DE-MYLANLABS-2019M1059299

PATIENT
  Age: 15 Year
  Sex: Male

DRUGS (3)
  1. ANAFRANIL [Suspect]
     Active Substance: CLOMIPRAMINE HYDROCHLORIDE
     Indication: COMPULSIONS
     Dosage: 75 MILLIGRAM, QD
     Route: 048
  2. LEPONEX [Suspect]
     Active Substance: CLOZAPINE
     Indication: SCHIZOPHRENIA
     Dosage: 500 MILLIGRAM, QD
     Route: 048
     Dates: start: 199210, end: 199901
  3. QUILONUM                           /00033702/ [Suspect]
     Active Substance: LITHIUM CARBONATE
     Indication: PRODUCT USED FOR UNKNOWN INDICATION
     Dosage: 1125 MILLIGRAM, QD
     Route: 048
     Dates: start: 1993

REACTIONS (2)
  - Product use issue [Recovered/Resolved]
  - Generalised tonic-clonic seizure [Recovered/Resolved]

NARRATIVE: CASE EVENT DATE: 199210
